FAERS Safety Report 12684700 (Version 1)
Quarter: 2016Q3

REPORT INFORMATION
  Report Type: Spontaneous
  Country: JP (occurrence: JP)
  Receive Date: 20160825
  Receipt Date: 20160825
  Transmission Date: 20161109
  Serious: Yes (Hospitalization)
  Sender: FDA-Public Use
  Company Number: JP-PFIZER INC-2015399654

PATIENT
  Age: 6 Year
  Sex: Male

DRUGS (1)
  1. ZITHROMAC 10% [Suspect]
     Active Substance: AZITHROMYCIN ANHYDROUS
     Indication: UPPER RESPIRATORY TRACT INFECTION
     Dosage: 10 MG/KG, DAILY
     Route: 048
     Dates: start: 20151112, end: 20151114

REACTIONS (2)
  - Agranulocytosis [Recovered/Resolved]
  - Idiosyncratic drug reaction [None]

NARRATIVE: CASE EVENT DATE: 201511
